FAERS Safety Report 12540164 (Version 2)
Quarter: 2016Q3

REPORT INFORMATION
  Report Type: Spontaneous
  Country: FR (occurrence: FR)
  Receive Date: 20160708
  Receipt Date: 20160720
  Transmission Date: 20161109
  Serious: Yes (Hospitalization)
  Sender: FDA-Public Use
  Company Number: FR-PFIZER INC-2016328235

PATIENT
  Age: 64 Year
  Sex: Female
  Weight: 51 kg

DRUGS (1)
  1. ATRACURIUM BESILATE [Suspect]
     Active Substance: ATRACURIUM BESYLATE
     Dosage: 1 DF, SINGLE
     Route: 042
     Dates: start: 20160226, end: 20160226

REACTIONS (3)
  - Medication error [Recovered/Resolved]
  - Acute respiratory distress syndrome [Recovered/Resolved]
  - Wrong drug administered [Recovered/Resolved]

NARRATIVE: CASE EVENT DATE: 20160226
